FAERS Safety Report 6909276-X (Version None)
Quarter: 2010Q3

REPORT INFORMATION
  Report Type: 
  Country: None (occurrence: None)
  Receive Date: 20100805
  Receipt Date: 20100723
  Transmission Date: 20110219
  Serious: Yes (Hospitalization)
  Sender: FDA-Public Use
  Company Number: PHHY2010FR48947

PATIENT
  Sex: Male

DRUGS (6)
  1. LEPONEX [Suspect]
     Dosage: 300 MG/DAY
     Route: 048
     Dates: start: 20100518, end: 20100618
  2. EFFEXOR [Concomitant]
     Dosage: 75 MG, TID
     Route: 048
  3. RAMIPRIL [Concomitant]
     Dosage: 10 MG, QD
     Route: 048
  4. KARDEGIC [Concomitant]
     Dosage: UNK
     Route: 048
  5. METFORMIN HCL [Concomitant]
     Indication: DIABETES MELLITUS
     Dosage: 850 MG, TID
     Route: 048
  6. NOVOMIX [Concomitant]
     Route: 058

REACTIONS (2)
  - EOSINOPHILIA [None]
  - NEUTROPHILIA [None]
